FAERS Safety Report 18117587 (Version 1)
Quarter: 2020Q3

REPORT INFORMATION
  Report Type: Spontaneous
  Country: US (occurrence: US)
  Receive Date: 20200805
  Receipt Date: 20200805
  Transmission Date: 20201103
  Serious: Yes (Other)
  Sender: FDA-Public Use
  Company Number: None

PATIENT
  Age: 12 Year
  Sex: Male
  Weight: 45 kg

DRUGS (5)
  1. NALTROXINE LOW DOSE [Concomitant]
  2. MAGNESIUM [Concomitant]
     Active Substance: MAGNESIUM
  3. ZYRTEC [Concomitant]
     Active Substance: CETIRIZINE HYDROCHLORIDE
  4. MELOTININ [Concomitant]
  5. KIRKLAND SIGNATURE ALLER TEC ALLERGY [Suspect]
     Active Substance: CETIRIZINE HYDROCHLORIDE
     Indication: SEASONAL ALLERGY
     Route: 048

REACTIONS (8)
  - Drug ineffective [None]
  - Feeling abnormal [None]
  - Withdrawal syndrome [None]
  - Contusion [None]
  - Scratch [None]
  - Pruritus [None]
  - Pain [None]
  - Screaming [None]

NARRATIVE: CASE EVENT DATE: 20200804
